FAERS Safety Report 6077969-5 (Version None)
Quarter: 2009Q1

REPORT INFORMATION
  Report Type: 
  Country: None (occurrence: None)
  Receive Date: 20090210
  Receipt Date: 20090202
  Transmission Date: 20090719
  Serious: Yes (Hospitalization)
  Sender: FDA-Public Use
  Company Number: DSA_33172_2009

PATIENT
  Sex: Female

DRUGS (3)
  1. LORAZEPAM [Suspect]
     Dosage: (1 DF 1X, ORAL)
     Route: 048
     Dates: start: 20090130, end: 20090130
  2. DIPHENHYDRAMINE HCL [Suspect]
     Dosage: (1000 MG 1X, ORAL)
     Route: 048
     Dates: start: 20090130, end: 20090130
  3. SEROQUEL [Suspect]
     Dosage: (800 MG 1X, ORAL)
     Route: 048
     Dates: start: 20090130, end: 20090130

REACTIONS (4)
  - FATIGUE [None]
  - MULTIPLE DRUG OVERDOSE INTENTIONAL [None]
  - SUICIDE ATTEMPT [None]
  - TACHYCARDIA [None]
